FAERS Safety Report 5571603-6 (Version None)
Quarter: 2007Q4

REPORT INFORMATION
  Report Type: 
  Country: None (occurrence: None)
  Receive Date: 20071219
  Receipt Date: 20071211
  Transmission Date: 20080405
  Serious: Yes (Hospitalization)
  Sender: FDA-Public Use
  Company Number: JPI-P-002669

PATIENT
  Age: 34 Year
  Sex: Female
  Weight: 77.1115 kg

DRUGS (2)
  1. XYREM [Suspect]
     Indication: NARCOLEPSY
     Dosage: 12 GM (12 GM,1 IN 1 D), ORAL; 6 GM (6 GM,1 IN 1 D), ORAL
     Route: 048
     Dates: start: 20070101
  2. XYREM [Suspect]
     Indication: NARCOLEPSY
     Dosage: 12 GM (12 GM,1 IN 1 D), ORAL; 6 GM (6 GM,1 IN 1 D), ORAL
     Route: 048
     Dates: start: 20070101

REACTIONS (3)
  - CONVULSION [None]
  - FEELING ABNORMAL [None]
  - LOSS OF CONSCIOUSNESS [None]
